FAERS Safety Report 9819850 (Version 1)
Quarter: 2013Q4

REPORT INFORMATION
  Report Type: Spontaneous
  Country: US (occurrence: None)
  Receive Date: 20131223
  Receipt Date: 20131223
  Transmission Date: 20140711
  Serious: No
  Sender: FDA-Public Use
  Company Number: 219375

PATIENT
  Sex: Female

DRUGS (1)
  1. PICATO (0.05 %, GEL) [Suspect]
     Indication: ACTINIC KERATOSIS
     Dates: start: 20121020, end: 20121021

REACTIONS (8)
  - Erythema [None]
  - Erythema [None]
  - Burning sensation [None]
  - Pruritus [None]
  - Pruritus [None]
  - Scab [None]
  - Incorrect dose administered [None]
  - Drug administered at inappropriate site [None]
